FAERS Safety Report 11564504 (Version 5)
Quarter: 2015Q4

REPORT INFORMATION
  Report Type: Report from Study
  Country: GB (occurrence: GB)
  Receive Date: 20150928
  Receipt Date: 20151125
  Transmission Date: 20160304
  Serious: Yes (Hospitalization, Other)
  Sender: FDA-Public Use
  Company Number: PHHO2015GB014565

PATIENT
  Age: 67 Year
  Sex: Male
  Weight: 64.1 kg

DRUGS (12)
  1. SENOKOT [Concomitant]
     Active Substance: SENNOSIDES
     Indication: PROPHYLAXIS
     Dosage: 1 DF, OD
     Route: 065
     Dates: start: 20140929
  2. ASPIRIN. [Concomitant]
     Active Substance: ASPIRIN
     Indication: ANTIPLATELET THERAPY
     Dosage: 75 MG, OD (EACH MORNING)
     Route: 065
     Dates: start: 20131203
  3. OMEPRAZOLE. [Concomitant]
     Active Substance: OMEPRAZOLE
     Indication: GASTRITIS PROPHYLAXIS
     Dosage: 30 MG, OD
     Route: 065
     Dates: start: 20131203
  4. ACZ885 [Suspect]
     Active Substance: CANAKINUMAB
     Indication: CARDIOVASCULAR EVENT PROPHYLAXIS
     Dosage: 300 MG, A
     Route: 058
     Dates: start: 20140121, end: 20150710
  5. RAMIPRIL. [Concomitant]
     Active Substance: RAMIPRIL
     Indication: PROPHYLAXIS
     Dosage: 2.5 MG, OD (EVERY MORNING AT 6 AM)
     Route: 048
     Dates: start: 20131203
  6. BISOPROLOL [Concomitant]
     Active Substance: BISOPROLOL
     Indication: PROPHYLAXIS
     Dosage: 5 MG, OD (EACH MORNING)
     Route: 048
     Dates: start: 20131203
  7. RECTOGESIC [Concomitant]
     Active Substance: NITROGLYCERIN
     Indication: ANAL FISSURE
     Dosage: 1 APPLICATION BID
     Route: 065
     Dates: start: 20140929, end: 20141013
  8. ATORVASTATIN [Concomitant]
     Active Substance: ATORVASTATIN
     Indication: DYSLIPIDAEMIA
     Dosage: 40 MG, OD
     Route: 065
     Dates: start: 20131203
  9. PRASUGREL [Concomitant]
     Active Substance: PRASUGREL
     Indication: ANTIPLATELET THERAPY
     Dosage: 10 MG, OD
     Route: 065
     Dates: start: 20131203, end: 20141220
  10. GTN [Concomitant]
     Active Substance: NITROGLYCERIN
     Indication: CARDIOVASCULAR EVENT PROPHYLAXIS
     Dosage: 400 UG, PRN
     Route: 060
     Dates: start: 20131203
  11. LACTULOSE. [Concomitant]
     Active Substance: LACTULOSE
     Indication: CONSTIPATION PROPHYLAXIS
     Dosage: 20 ML, OD
     Route: 065
     Dates: start: 20140213
  12. SENOKOT [Concomitant]
     Active Substance: SENNOSIDES
     Dosage: 1 DF, OD
     Route: 065
     Dates: start: 20150510

REACTIONS (1)
  - Transitional cell carcinoma [Not Recovered/Not Resolved]

NARRATIVE: CASE EVENT DATE: 20150819
